FAERS Safety Report 14608387 (Version 1)
Quarter: 2018Q1

REPORT INFORMATION
  Report Type: Spontaneous
  Country: IT (occurrence: IT)
  Receive Date: 20180307
  Receipt Date: 20180307
  Transmission Date: 20180509
  Serious: Yes (Hospitalization)
  Sender: FDA-Public Use
  Company Number: IT-TEVA-2018-IT-862765

PATIENT
  Age: 93 Year
  Sex: Female

DRUGS (6)
  1. LANSOPRAZOLE. [Concomitant]
     Active Substance: LANSOPRAZOLE
  2. CARDIRENE [Concomitant]
     Active Substance: ASPIRIN DL-LYSINE
  3. FUROSEMIDE. [Suspect]
     Active Substance: FUROSEMIDE
     Indication: HYPERTENSION
     Route: 048
     Dates: start: 20170101, end: 20170722
  4. CATAPRESAN [Concomitant]
     Active Substance: CLONIDINE
  5. MINIAS [Concomitant]
     Active Substance: LORMETAZEPAM
  6. FLUXUM 3.200 U.I. AXA SOLUZIONE INIETTABILE IN SIRINGA PRERIEMPITA [Concomitant]

REACTIONS (4)
  - Hypokalaemia [Unknown]
  - Decreased appetite [Unknown]
  - Sopor [Unknown]
  - Aphasia [Unknown]

NARRATIVE: CASE EVENT DATE: 20170722
